FAERS Safety Report 13076291 (Version 1)
Quarter: 2016Q4

REPORT INFORMATION
  Report Type: Spontaneous
  Country: US (occurrence: US)
  Receive Date: 20161229
  Receipt Date: 20161229
  Transmission Date: 20170207
  Serious: Yes (Life-Threatening, Hospitalization)
  Sender: FDA-Public Use
  Company Number: None

PATIENT
  Age: 84 Year
  Sex: Male
  Weight: 97.2 kg

DRUGS (2)
  1. INDOMETHACIN. [Suspect]
     Active Substance: INDOMETHACIN
     Route: 048
     Dates: start: 20160728, end: 20160817
  2. APIXABAN [Suspect]
     Active Substance: APIXABAN
     Route: 048
     Dates: start: 20150930

REACTIONS (3)
  - Gastrointestinal haemorrhage [None]
  - Haemoglobin decreased [None]
  - Acute kidney injury [None]

NARRATIVE: CASE EVENT DATE: 20160807
